FAERS Safety Report 8556152 (Version 2)
Quarter: 2013Q3

REPORT INFORMATION
  Report Type: Spontaneous
  Country: US (occurrence: US)
  Receive Date: 20120510
  Receipt Date: 20130718
  Transmission Date: 20140515
  Serious: Yes (Other)
  Sender: FDA-Public Use
  Company Number: US-JNJFOC-20111011100

PATIENT
  Age: 59 Year
  Sex: Female

DRUGS (1)
  1. LEVAQUIN [Suspect]
     Indication: CYSTITIS
     Route: 048

REACTIONS (5)
  - Rotator cuff syndrome [Unknown]
  - Trigger finger [Unknown]
  - Depression [Unknown]
  - Tendonitis [Unknown]
  - Anxiety [Unknown]
